FAERS Safety Report 8204470-2 (Version None)
Quarter: 2012Q1

REPORT INFORMATION
  Report Type: 
  Country: None (occurrence: None)
  Receive Date: 20120313
  Receipt Date: 20120305
  Transmission Date: 20120608
  Serious: Yes (Other)
  Sender: FDA-Public Use
  Company Number: CN-BAYER-2011-066352

PATIENT
  Age: 60 Year
  Sex: Male

DRUGS (2)
  1. AVELOX [Suspect]
     Indication: LUNG INFECTION
     Dosage: 400 MG, QD
     Dates: start: 20110725
  2. ANTIHYPERTENSIVES [Concomitant]

REACTIONS (4)
  - SPEECH DISORDER [None]
  - ARTHRALGIA [None]
  - MENTAL IMPAIRMENT [None]
  - MENTAL STATUS CHANGES [None]
